FAERS Safety Report 26009624 (Version 1)
Quarter: 2025Q4

REPORT INFORMATION
  Report Type: Spontaneous
  Country: US (occurrence: US)
  Receive Date: 20251107
  Receipt Date: 20251107
  Transmission Date: 20260117
  Serious: Yes (Hospitalization)
  Sender: THE RITEDOSE CORP
  Company Number: US-THE RITEDOSE CORPORATION-2025RIT000182

PATIENT

DRUGS (1)
  1. ALBUTEROL SULFATE [Suspect]
     Active Substance: ALBUTEROL SULFATE
     Indication: Dyspnoea
     Dosage: UNK

REACTIONS (4)
  - Gastrointestinal haemorrhage [Unknown]
  - Dysgeusia [Unknown]
  - Wheezing [Unknown]
  - Off label use [Unknown]

NARRATIVE: CASE EVENT DATE: 20250904
